FAERS Safety Report 9057405 (Version 4)
Quarter: 2013Q1

REPORT INFORMATION
  Report Type: Spontaneous
  Country: US (occurrence: US)
  Receive Date: 20130204
  Receipt Date: 20130307
  Transmission Date: 20140127
  Serious: Yes (Hospitalization, Other)
  Sender: FDA-Public Use
  Company Number: US-TEVA-381062USA

PATIENT
  Sex: Female

DRUGS (1)
  1. AZITHROMYCIN [Suspect]

REACTIONS (19)
  - Blood pressure increased [Recovered/Resolved]
  - Palpitations [Unknown]
  - VIIth nerve paralysis [Unknown]
  - Dizziness [Unknown]
  - Gait disturbance [Unknown]
  - Asthenia [Unknown]
  - Muscle spasms [Unknown]
  - Myalgia [Unknown]
  - Decreased appetite [Unknown]
  - Weight decreased [Unknown]
  - Nausea [Unknown]
  - Trismus [Unknown]
  - Movement disorder [Unknown]
  - Insomnia [Unknown]
  - Pain [Unknown]
  - Malaise [Unknown]
  - Skin tightness [Unknown]
  - Paraesthesia [Unknown]
  - Vomiting [Unknown]
